FAERS Safety Report 4309604-8 (Version None)
Quarter: 2004Q1

REPORT INFORMATION
  Report Type: 
  Country: None (occurrence: None)
  Receive Date: 20040302
  Receipt Date: 20010515
  Transmission Date: 20041129
  Serious: Yes (Hospitalization, Disabling)
  Sender: FDA-Public Use
  Company Number: WAES 01051542

PATIENT
  Age: 57 Year
  Sex: Female
  Weight: 98 kg

DRUGS (3)
  1. IBUPROFEN [Concomitant]
  2. VIOXX [Suspect]
     Indication: JOINT SWELLING
     Route: 048
     Dates: start: 20010330, end: 20010403
  3. VIOXX [Suspect]
     Indication: PAIN
     Route: 048
     Dates: start: 20010330, end: 20010403

REACTIONS (8)
  - ASTHENIA [None]
  - CHEST DISCOMFORT [None]
  - EMOTIONAL DISTRESS [None]
  - HYPERHIDROSIS [None]
  - HYPERSENSITIVITY [None]
  - INJURY [None]
  - MUSCULAR WEAKNESS [None]
  - MYOCARDIAL INFARCTION [None]
